FAERS Safety Report 4284234-5 (Version None)
Quarter: 2004Q1

REPORT INFORMATION
  Report Type: 
  Country: None (occurrence: None)
  Receive Date: 20040130
  Receipt Date: 20040121
  Transmission Date: 20041129
  Serious: Yes (Other)
  Sender: FDA-Public Use
  Company Number: GB-JNJFOC-20040104044

PATIENT
  Age: 53 Year

DRUGS (3)
  1. REMICADE [Suspect]
     Indication: RHEUMATOID ARTHRITIS
     Dosage: 160 MG, INTRAVENOUS
     Route: 042
     Dates: start: 20021128, end: 20031016
  2. PREDNISOLONE [Concomitant]
  3. MOVELAT (MOVELAT) [Concomitant]

REACTIONS (5)
  - ADENOCARCINOMA [None]
  - METASTASES TO BONE [None]
  - METASTASES TO LIVER [None]
  - METASTASES TO LUNG [None]
  - METASTATIC NEOPLASM [None]
